FAERS Safety Report 23198483 (Version 3)
Quarter: 2024Q1

REPORT INFORMATION
  Report Type: Spontaneous
  Country: US (occurrence: US)
  Receive Date: 20231117
  Receipt Date: 20240220
  Transmission Date: 20240410
  Serious: Yes (Death)
  Sender: FDA-Public Use
  Company Number: US-PFIZER INC-202300369789

PATIENT
  Age: 84 Year
  Sex: Male
  Weight: 65.769 kg

DRUGS (5)
  1. VYNDAMAX [Suspect]
     Active Substance: TAFAMIDIS
     Indication: Amyloidosis
     Dosage: 61 MG, 1X/DAY
     Dates: start: 202005
  2. VYNDAMAX [Suspect]
     Active Substance: TAFAMIDIS
     Indication: Amyloidosis
  3. VYNDAMAX [Suspect]
     Active Substance: TAFAMIDIS
     Indication: Cardiac amyloidosis
  4. HYDROCODONE [Concomitant]
     Active Substance: HYDROCODONE
     Indication: Pain
     Dosage: UNK
  5. OXYCODONE [Concomitant]
     Active Substance: OXYCODONE\OXYCODONE HYDROCHLORIDE
     Indication: Pain
     Dosage: UNK

REACTIONS (2)
  - Cardiac arrest [Fatal]
  - Cardiac amyloidosis [Fatal]
